FAERS Safety Report 5447249-7 (Version None)
Quarter: 2007Q3

REPORT INFORMATION
  Report Type: 
  Country: None (occurrence: None)
  Receive Date: 20070905
  Receipt Date: 20070905
  Transmission Date: 20080115
  Serious: Yes (Hospitalization)
  Sender: FDA-Public Use
  Company Number: None

PATIENT
  Age: 66 Year
  Sex: Male
  Weight: 83.4619 kg

DRUGS (1)
  1. DULCOLAX [Suspect]
     Indication: COLONOSCOPY
     Dosage: OTC X2 PILLS ONLY ORAL
     Route: 048
     Dates: start: 20070820

REACTIONS (4)
  - COLITIS ISCHAEMIC [None]
  - LARGE INTESTINAL ULCER [None]
  - LOSS OF CONSCIOUSNESS [None]
  - SYNCOPE VASOVAGAL [None]
